FAERS Safety Report 10280950 (Version 1)
Quarter: 2014Q3

REPORT INFORMATION
  Report Type: Spontaneous
  Country: US (occurrence: None)
  Receive Date: 20140702
  Receipt Date: 20140702
  Transmission Date: 20150326
  Serious: No
  Sender: FDA-Public Use
  Company Number: None

PATIENT
  Sex: Female
  Weight: 61.24 kg

DRUGS (1)
  1. BUPROPION 150MG ACTAVIS PH [Suspect]
     Active Substance: BUPROPION
     Indication: DEPRESSION
     Dosage: 1 EVERY 12 HOURS
     Route: 048
     Dates: start: 20140604, end: 20140625

REACTIONS (2)
  - Product substitution issue [None]
  - Drug ineffective [None]
